FAERS Safety Report 17253613 (Version 1)
Quarter: 2020Q1

REPORT INFORMATION
  Report Type: Spontaneous
  Country: US (occurrence: US)
  Receive Date: 20200109
  Receipt Date: 20200109
  Transmission Date: 20200409
  Serious: Yes (Other)
  Sender: FDA-Public Use
  Company Number: US-MALLINCKRODT-T201909196

PATIENT

DRUGS (1)
  1. OFIRMEV [Suspect]
     Active Substance: ACETAMINOPHEN
     Indication: PROCEDURAL PAIN
     Dosage: UNK, 1 DOSE EVERY 6 HOURS
     Route: 042

REACTIONS (2)
  - Aspartate aminotransferase increased [Unknown]
  - Apnoea [Unknown]
